FAERS Safety Report 6713959-4 (Version None)
Quarter: 2010Q2

REPORT INFORMATION
  Report Type: 
  Country: None (occurrence: None)
  Receive Date: 20100503
  Receipt Date: 20100421
  Transmission Date: 20101027
  Serious: Yes (Hospitalization)
  Sender: FDA-Public Use
  Company Number: 2010AP000660

PATIENT
  Age: 45 Year
  Sex: Male

DRUGS (6)
  1. RISPERIDONE [Suspect]
     Indication: MANIA
     Dosage: 2 MG; PO
     Route: 048
     Dates: start: 20100128, end: 20100201
  2. ATENOLOL [Concomitant]
  3. BENDROFLUMETHIAZIDE (BENDROFLUMETHIAZIDE) [Concomitant]
  4. GLYCERYL TRINITRATE [Concomitant]
  5. ISOSORBIDE MONONITRATE [Concomitant]
  6. ACETAMINOPHEN [Concomitant]

REACTIONS (2)
  - DIARRHOEA [None]
  - DRUG WITHDRAWAL SYNDROME [None]
